FAERS Safety Report 7738454-5 (Version None)
Quarter: 2011Q3

REPORT INFORMATION
  Report Type: 
  Country: None (occurrence: None)
  Receive Date: 20110908
  Receipt Date: 20110831
  Transmission Date: 20111222
  Serious: Yes (Other)
  Sender: FDA-Public Use
  Company Number: US-BAXTER-2011BH028166

PATIENT
  Age: 76 Year
  Sex: Female

DRUGS (6)
  1. GAMMAGARD LIQUID [Suspect]
     Indication: OFF LABEL USE
     Route: 065
  2. GAMMAGARD LIQUID [Suspect]
     Route: 065
  3. MACROBID [Concomitant]
     Indication: CYSTITIS
     Route: 065
  4. GAMMAGARD LIQUID [Suspect]
     Route: 065
  5. GAMMAGARD LIQUID [Suspect]
     Indication: CHRONIC INFLAMMATORY DEMYELINATING POLYRADICULONEUROPATHY
     Route: 065
  6. PREDNISONE [Concomitant]
     Indication: PRODUCT USED FOR UNKNOWN INDICATION
     Route: 065

REACTIONS (3)
  - CONDITION AGGRAVATED [None]
  - CYSTITIS [None]
  - THERAPEUTIC RESPONSE DECREASED [None]
